FAERS Safety Report 4362139-9 (Version None)
Quarter: 2004Q2

REPORT INFORMATION
  Report Type: 
  Country: None (occurrence: None)
  Receive Date: 20040517
  Receipt Date: 20040506
  Transmission Date: 20050107
  Serious: Yes (Hospitalization)
  Sender: FDA-Public Use
  Company Number: TPA2004A00563

PATIENT
  Age: 83 Year
  Sex: Female
  Weight: 58.9676 kg

DRUGS (5)
  1. ACTOS [Suspect]
     Indication: DIABETES MELLITUS NON-INSULIN-DEPENDENT
     Dosage: 30 MG, 1 IN 1 D, PER ORAL
     Route: 048
     Dates: start: 20010506
  2. PRAVACHOL (PRAVASTATIN SODIUM) (40 MILLIGRAM) [Concomitant]
  3. LANOXIN (DIGOXIN) (0.125 MILLIGRAM) [Concomitant]
  4. ZOLOFT (SERTRALINE HYSROCHLORIDE) (50 MILLIGRAM) [Concomitant]
  5. CARDIZEM CD (DILTIAZEM HYDROCHLORIDE) (180 MILLIGRAM) [Concomitant]

REACTIONS (2)
  - PNEUMONIA [None]
  - RESPIRATORY TRACT CONGESTION [None]
